FAERS Safety Report 21163201 (Version 4)
Quarter: 2022Q4

REPORT INFORMATION
  Report Type: Spontaneous
  Country: US (occurrence: US)
  Receive Date: 20220802
  Receipt Date: 20221216
  Transmission Date: 20230113
  Serious: No
  Sender: FDA-Public Use
  Company Number: US-PFIZER INC-PV202200034134

PATIENT
  Age: 68 Year
  Sex: Female

DRUGS (1)
  1. IBRANCE [Suspect]
     Active Substance: PALBOCICLIB
     Dosage: 125 MG

REACTIONS (9)
  - Alopecia [Not Recovered/Not Resolved]
  - Eating disorder [Unknown]
  - Oral infection [Unknown]
  - Procedural complication [Unknown]
  - Onychomadesis [Unknown]
  - Fatigue [Unknown]
  - Nail disorder [Unknown]
  - Emotional distress [Unknown]
  - Dizziness postural [Unknown]
